FAERS Safety Report 7401759-1 (Version None)
Quarter: 2011Q2

REPORT INFORMATION
  Report Type: 
  Country: None (occurrence: None)
  Receive Date: 20110408
  Receipt Date: 20110404
  Transmission Date: 20111010
  Serious: No
  Sender: FDA-Public Use
  Company Number: US-PFIZER INC-2011074978

PATIENT
  Sex: Female
  Weight: 65 kg

DRUGS (14)
  1. VITAMIN D [Concomitant]
     Dosage: 1.25 MG, MONTHLY
  2. HYDROXYCHLOROQUINE [Concomitant]
     Indication: SJOGREN'S SYNDROME
     Dosage: 200 MG DAILY
  3. LIPITOR [Concomitant]
     Indication: BLOOD CHOLESTEROL ABNORMAL
     Dosage: 40 MG DAILY
  4. CENTRUM SILVER [Concomitant]
     Indication: VITAMIN SUPPLEMENTATION
     Dosage: UNK, DAILY
  5. NIFEDIPINE [Suspect]
     Indication: BLOOD PRESSURE ABNORMAL
  6. HYDROCHLOROTHIAZIDE [Concomitant]
     Indication: BLOOD PRESSURE ABNORMAL
     Dosage: 12.5 MG, 3X/WEEK
  7. NEXIUM [Concomitant]
     Indication: GASTROOESOPHAGEAL REFLUX DISEASE
     Dosage: 40 MG DAILY
  8. IBANDRONATE SODIUM [Concomitant]
     Indication: BONE DISORDER
  9. PRISTIQ [Suspect]
     Indication: DEPRESSION
     Dosage: 50 MG DAILY
  10. NIFEDIPINE [Suspect]
     Indication: CARDIAC DISORDER
     Dosage: 30 MG, 3X/WEEK
     Dates: end: 20110204
  11. ATENOLOL [Concomitant]
     Indication: CARDIAC DISORDER
     Dosage: 25 MG DAILY
  12. ACETYLSALICYLIC ACID [Concomitant]
     Indication: CARDIAC DISORDER
     Dosage: 81 MG, 3X/WEEK
  13. VIVELLE [Concomitant]
     Indication: OESTROGEN THERAPY
     Dosage: 0.038 MG, 2X/WEEK
  14. IBANDRONATE SODIUM [Concomitant]
     Indication: MINERAL SUPPLEMENTATION
     Dosage: UNK, 3X/YEAR

REACTIONS (5)
  - PAIN [None]
  - CHILLS [None]
  - MYALGIA [None]
  - INFLUENZA LIKE ILLNESS [None]
  - MALAISE [None]
